FAERS Safety Report 7508960-7 (Version None)
Quarter: 2011Q2

REPORT INFORMATION
  Report Type: 
  Country: None (occurrence: None)
  Receive Date: 20110527
  Receipt Date: 20110524
  Transmission Date: 20111010
  Serious: Yes (Hospitalization)
  Sender: FDA-Public Use
  Company Number: IT-PFIZER INC-2008027692

PATIENT
  Age: 69 Year
  Sex: Female
  Weight: 70 kg

DRUGS (9)
  1. DOCETAXEL [Suspect]
     Indication: BREAST CANCER
     Dosage: EVERY 21 DAYS
     Route: 042
     Dates: start: 20080226
  2. DOCETAXEL [Suspect]
     Dosage: EVERY 21 DAYS
     Route: 042
     Dates: start: 20080318
  3. TRASTUZUMAB [Suspect]
     Dosage: EVERY 21 DAYS
     Route: 042
     Dates: start: 20080318
  4. TRASTUZUMAB [Suspect]
     Indication: BREAST CANCER
     Dosage: EVERY 21 DAYS
     Route: 042
     Dates: start: 20080226
  5. SUNITINIB MALATE [Suspect]
     Dosage: 25 MG, 1X/DAY
     Route: 048
     Dates: start: 20080319
  6. LANSOX [Concomitant]
     Dosage: UNK
     Route: 048
     Dates: start: 20080317
  7. SUNITINIB MALATE [Suspect]
     Indication: BREAST CANCER
     Dosage: 37.5 MG, 1X/DAY
     Route: 048
     Dates: start: 20080227, end: 20080303
  8. MYCOSTATIN [Concomitant]
     Route: 048
     Dates: start: 20080317
  9. PLAK OUT [Concomitant]
     Route: 048
     Dates: start: 20080317

REACTIONS (3)
  - DIARRHOEA [None]
  - NEUTROPENIA [None]
  - SYNCOPE [None]
